FAERS Safety Report 4600418-8 (Version None)
Quarter: 2005Q1

REPORT INFORMATION
  Report Type: 
  Country: None (occurrence: None)
  Receive Date: 20050304
  Receipt Date: 20050218
  Transmission Date: 20050727
  Serious: Yes (Hospitalization)
  Sender: FDA-Public Use
  Company Number: K200500263

PATIENT
  Age: 42 Year
  Sex: Male

DRUGS (6)
  1. SEPTRA [Suspect]
     Dates: end: 20040401
  2. COMBIVIR [Suspect]
     Indication: ACQUIRED IMMUNODEFICIENCY SYNDROME
     Dosage: ORAL
     Route: 048
     Dates: end: 20040409
  3. COVERSYL (PERINDOPRIL ERBUMINE) 4 MG [Suspect]
     Indication: ESSENTIAL HYPERTENSION
     Dosage: 4 MG, QD
     Dates: start: 20030615
  4. VIRACEPT [Suspect]
     Indication: HIV INFECTION
     Dates: end: 20040401
  5. DEPAKENE [Suspect]
     Dates: end: 20040401
  6. LIORESAL [Suspect]
     Dates: end: 20040401

REACTIONS (5)
  - ALANINE AMINOTRANSFERASE INCREASED [None]
  - ASPARTATE AMINOTRANSFERASE INCREASED [None]
  - BLOOD LACTATE DEHYDROGENASE INCREASED [None]
  - BONE MARROW DEPRESSION [None]
  - PROTHROMBIN LEVEL DECREASED [None]
